FAERS Safety Report 8862756 (Version 1)
Quarter: 2012Q4

REPORT INFORMATION
  Report Type: 
  Country: US (occurrence: US)
  Receive Date: 20121026
  Receipt Date: 20121026
  Transmission Date: 20130627
  Serious: No
  Sender: FDA-Public Use
  Company Number: US-ALLERGAN-1208934US

PATIENT
  Sex: Female

DRUGS (2)
  1. ALPHAGAN P [Suspect]
     Indication: IOP INCREASED
     Dosage: 2 Gtt, bid
     Route: 047
     Dates: start: 20120302, end: 20120627
  2. PRED FORTE� [Concomitant]
     Indication: INFLAMMATION
     Dosage: UNK
     Dates: end: 20120627

REACTIONS (1)
  - Intraocular pressure test abnormal [Unknown]
